FAERS Safety Report 24537889 (Version 1)
Quarter: 2024Q4

REPORT INFORMATION
  Report Type: Spontaneous
  Country: CZ (occurrence: CZ)
  Receive Date: 20241023
  Receipt Date: 20241023
  Transmission Date: 20250114
  Serious: Yes (Other)
  Sender: SANDOZ
  Company Number: CZ-NOVPHSZ-PHHY2019CZ052950

PATIENT
  Sex: Female

DRUGS (3)
  1. RIVOTRIL [Suspect]
     Active Substance: CLONAZEPAM
     Indication: Product used for unknown indication
     Dosage: 1 MG, QD (THE DOSAGE 0-0-1 FOR NIGHT, AROUND 22-23 ^CLOCK)
     Route: 065
  2. VALPROATE SODIUM [Suspect]
     Active Substance: VALPROATE SODIUM
     Indication: Product used for unknown indication
     Dosage: 1000 MG, QD (THE DOSAGE 0-0-1, AROUND 20-21 O^CLOCK)
     Route: 065
  3. ZYPADHERA [Suspect]
     Active Substance: OLANZAPINE PAMOATE
     Indication: Product used for unknown indication
     Dosage: (IN THE MORNING AROUND 8-9 O^CLOCK)
     Route: 030

REACTIONS (2)
  - Choking [Recovered/Resolved]
  - Dehydration [Unknown]
